FAERS Safety Report 9648739 (Version 5)
Quarter: 2015Q2

REPORT INFORMATION
  Report Type: Report from Study
  Country: US (occurrence: US)
  Receive Date: 20131028
  Receipt Date: 20150623
  Transmission Date: 20150821
  Serious: Yes (Hospitalization, Other)
  Sender: FDA-Public Use
  Company Number: US-ACTELION-A-NJ2013-90084

PATIENT
  Age: 76 Year
  Sex: Female

DRUGS (28)
  1. ASA [Concomitant]
     Active Substance: ASPIRIN
  2. GAMUNEX [Concomitant]
     Active Substance: HUMAN IMMUNOGLOBULIN G
  3. TRACLEER [Suspect]
     Active Substance: BOSENTAN\BOSENTAN MONOHYDRATE
     Indication: PULMONARY HYPERTENSION
     Dosage: 125 MG, UNK
     Route: 048
     Dates: start: 200506
  4. HYDROCHLOROTHIAZIDE. [Concomitant]
     Active Substance: HYDROCHLOROTHIAZIDE
  5. LEVOTHYROXINE [Concomitant]
     Active Substance: LEVOTHYROXINE
  6. SPIRONOLACTONE. [Concomitant]
     Active Substance: SPIRONOLACTONE
  7. FERROUS SULFATE [Concomitant]
     Active Substance: FERROUS SULFATE\FERROUS SULFATE, DRIED
  8. SULFASALAZINE. [Concomitant]
     Active Substance: SULFASALAZINE
  9. FOLIC ACID. [Concomitant]
     Active Substance: FOLIC ACID
  10. VITAMIN D [Concomitant]
     Active Substance: CHOLECALCIFEROL
     Dosage: 50000 U, Q1WEEK
     Dates: start: 2003
  11. NEXIUM [Concomitant]
     Active Substance: ESOMEPRAZOLE MAGNESIUM
  12. LISINOPRIL. [Concomitant]
     Active Substance: LISINOPRIL
  13. SINGULAIR [Concomitant]
     Active Substance: MONTELUKAST SODIUM
  14. TRENTAL [Concomitant]
     Active Substance: PENTOXIFYLLINE
  15. PROTONIX [Concomitant]
     Active Substance: PANTOPRAZOLE SODIUM
  16. APAP [Concomitant]
     Active Substance: ACETAMINOPHEN
  17. CYMBALTA [Concomitant]
     Active Substance: DULOXETINE HYDROCHLORIDE
  18. CARBIDOPA. [Concomitant]
     Active Substance: CARBIDOPA
  19. AMBIEN [Concomitant]
     Active Substance: ZOLPIDEM TARTRATE
  20. REMICADE [Concomitant]
     Active Substance: INFLIXIMAB
  21. ALLEGRA [Concomitant]
     Active Substance: FEXOFENADINE HYDROCHLORIDE
  22. IGG [Concomitant]
     Active Substance: HUMAN IMMUNOGLOBULIN G
     Dosage: UNK
     Route: 042
  23. GABAPENTIN. [Concomitant]
     Active Substance: GABAPENTIN
  24. PLAQUENIL [Concomitant]
     Active Substance: HYDROXYCHLOROQUINE SULFATE
  25. FISH OIL [Concomitant]
     Active Substance: FISH OIL
  26. ACTON [Concomitant]
  27. MAGNESIUM OXIDE. [Concomitant]
     Active Substance: MAGNESIUM OXIDE
  28. HYDROCODONE [Concomitant]
     Active Substance: HYDROCODONE

REACTIONS (18)
  - Urinary retention [Not Recovered/Not Resolved]
  - Diarrhoea [Unknown]
  - Chest pain [Unknown]
  - Renal artery stent placement [Unknown]
  - Vomiting [Unknown]
  - Syncope [Unknown]
  - Sepsis [Recovered/Resolved]
  - Clostridium difficile infection [Unknown]
  - Nausea [Unknown]
  - Blood sodium decreased [Recovered/Resolved]
  - Urinary tract infection [Unknown]
  - Hypovolaemia [Recovered/Resolved]
  - Blood magnesium decreased [Recovered/Resolved]
  - Dehydration [Recovering/Resolving]
  - Hydronephrosis [Not Recovered/Not Resolved]
  - Dizziness [Unknown]
  - Blood potassium decreased [Recovered/Resolved]
  - Fatigue [Unknown]

NARRATIVE: CASE EVENT DATE: 201108
